FAERS Safety Report 16964435 (Version 1)
Quarter: 2019Q4

REPORT INFORMATION
  Report Type: Report from Study
  Country: None (occurrence: US)
  Receive Date: 20191027
  Receipt Date: 20191027
  Transmission Date: 20200122
  Serious: Yes (Other)
  Sender: FDA-Public Use
  Company Number: US-ABBVIE-19K-163-2958109-00

PATIENT
  Age: 35 Year
  Sex: Female

DRUGS (3)
  1. HUMIRA [Suspect]
     Active Substance: ADALIMUMAB
     Indication: ANKYLOSING SPONDYLITIS
     Route: 058
     Dates: start: 2010
  2. HUMIRA [Suspect]
     Active Substance: ADALIMUMAB
     Indication: CROHN^S DISEASE
     Dosage: CITRATE FREE
     Route: 058
     Dates: start: 20191007, end: 20191007
  3. HUMIRA [Suspect]
     Active Substance: ADALIMUMAB
     Dosage: CITRATE FREE
     Route: 058
     Dates: start: 20191021

REACTIONS (14)
  - Muscle spasms [Not Recovered/Not Resolved]
  - Nausea [Recovering/Resolving]
  - Intervertebral disc protrusion [Recovered/Resolved]
  - Ocular hyperaemia [Not Recovered/Not Resolved]
  - Eye infection [Not Recovered/Not Resolved]
  - Crohn^s disease [Not Recovered/Not Resolved]
  - Eye swelling [Not Recovered/Not Resolved]
  - Vision blurred [Recovering/Resolving]
  - Spinal cord compression [Recovered/Resolved]
  - Eye discharge [Not Recovered/Not Resolved]
  - Sleep disorder [Unknown]
  - Fatigue [Not Recovered/Not Resolved]
  - Ehlers-Danlos syndrome [Not Recovered/Not Resolved]
  - Irritable bowel syndrome [Recovered/Resolved with Sequelae]

NARRATIVE: CASE EVENT DATE: 2012
